FAERS Safety Report 12711252 (Version 2)
Quarter: 2016Q3

REPORT INFORMATION
  Report Type: Spontaneous
  Country: US (occurrence: US)
  Receive Date: 20160902
  Receipt Date: 20160913
  Transmission Date: 20161109
  Serious: Yes (Hospitalization, Other)
  Sender: FDA-Public Use
  Company Number: US-ASTRAZENECA-2016SE92463

PATIENT
  Age: 20685 Day
  Sex: Female
  Weight: 57.6 kg

DRUGS (10)
  1. CRESTOR [Suspect]
     Active Substance: ROSUVASTATIN CALCIUM
     Indication: BLOOD CHOLESTEROL ABNORMAL
     Dosage: 10.0MG UNKNOWN
     Route: 048
  2. VITAMIN D [Concomitant]
     Active Substance: CHOLECALCIFEROL
     Indication: NEOPLASM MALIGNANT
     Dosage: 5000 IU TWO TABLETS BY MOUTH DAILY
     Route: 048
     Dates: start: 2014
  3. TAXIDERA [Concomitant]
  4. PREDNISONE. [Suspect]
     Active Substance: PREDNISONE
     Route: 048
  5. OMEGA 3 FISH OIL [Concomitant]
     Active Substance: FISH OIL\OMEGA-3 FATTY ACIDS
     Indication: BLOOD TRIGLYCERIDES
     Dosage: 1000 MG, TWO LIQUIGELS BY MOUTH DAILY
     Route: 048
     Dates: start: 2015
  6. LIPITOR [Suspect]
     Active Substance: ATORVASTATIN CALCIUM
     Indication: BLOOD CHOLESTEROL ABNORMAL
     Dosage: 40 MG HALF TABLET BY MOUTH ONCE DAILY. ON THE 3RD WEEK SHE WAS TO TAKE A WHOLE TABLE DAILY.
     Route: 048
     Dates: start: 20160729, end: 20160823
  7. VITAMIN D [Concomitant]
     Active Substance: CHOLECALCIFEROL
     Indication: VITAMIN D DEFICIENCY
     Dosage: 5000 IU TWO TABLETS BY MOUTH DAILY
     Route: 048
     Dates: start: 2014
  8. ARIMIDEX [Suspect]
     Active Substance: ANASTROZOLE
     Indication: BREAST CANCER
     Route: 048
     Dates: start: 20150218
  9. ARIMIDEX [Suspect]
     Active Substance: ANASTROZOLE
     Indication: NEOPLASM MALIGNANT
     Route: 048
     Dates: start: 20150218
  10. BAYER ASPIRIN [Concomitant]
     Active Substance: ASPIRIN
     Indication: ANTICOAGULANT THERAPY
     Dosage: 81MG 2 TABLETS BY MOUTH DAILY, STARTED ABOUT 10 YEARS AGO
     Route: 048

REACTIONS (18)
  - Dizziness [Recovering/Resolving]
  - Low density lipoprotein increased [Unknown]
  - Myalgia [Recovered/Resolved]
  - Night sweats [Unknown]
  - Confusional state [Unknown]
  - Vomiting [Recovering/Resolving]
  - Muscle spasms [Recovered/Resolved]
  - Swelling [Unknown]
  - High density lipoprotein decreased [Unknown]
  - Diarrhoea [Not Recovered/Not Resolved]
  - Speech disorder [Unknown]
  - Breast cancer [Unknown]
  - Movement disorder [Unknown]
  - Hyperhidrosis [Recovering/Resolving]
  - Nausea [Recovering/Resolving]
  - Brain oedema [Unknown]
  - Blood cholesterol increased [Unknown]
  - Abdominal discomfort [Unknown]

NARRATIVE: CASE EVENT DATE: 20160729
